FAERS Safety Report 23760292 (Version 6)
Quarter: 2024Q3

REPORT INFORMATION
  Report Type: Spontaneous
  Country: US (occurrence: US)
  Receive Date: 20240419
  Receipt Date: 20240705
  Transmission Date: 20241017
  Serious: No
  Sender: BIOGEN
  Company Number: US-BIOGEN-2023BI01218112

PATIENT
  Sex: Female

DRUGS (17)
  1. VUMERITY [Suspect]
     Active Substance: DIROXIMEL FUMARATE
     Indication: Multiple sclerosis
     Dosage: STARTING DOSE
     Route: 050
     Dates: start: 20211110
  2. VUMERITY [Suspect]
     Active Substance: DIROXIMEL FUMARATE
     Dosage: MAINTENANCE DOSE
     Route: 050
  3. VUMERITY [Suspect]
     Active Substance: DIROXIMEL FUMARATE
     Route: 050
     Dates: start: 20240411, end: 20240417
  4. VUMERITY [Suspect]
     Active Substance: DIROXIMEL FUMARATE
     Route: 050
     Dates: start: 20240418
  5. LISINOPRIL [Concomitant]
     Active Substance: LISINOPRIL
     Route: 050
  6. VITAMIN C [Concomitant]
     Active Substance: ASCORBIC ACID
     Route: 050
  7. VITAMIN D3 [Concomitant]
     Active Substance: CHOLECALCIFEROL
     Route: 050
  8. ZINC [Concomitant]
     Active Substance: ZINC
     Route: 050
  9. CALCIUM [Concomitant]
     Active Substance: CALCIUM
     Route: 050
  10. MAGNESIUM [Concomitant]
     Active Substance: MAGNESIUM
     Route: 050
  11. NIACIN [Concomitant]
     Active Substance: NIACIN
     Route: 050
  12. GABAPENTIN [Concomitant]
     Active Substance: GABAPENTIN
     Route: 050
  13. VITAMIN B12 [Concomitant]
     Active Substance: CYANOCOBALAMIN
     Route: 050
  14. VITAMIN E [Concomitant]
     Active Substance: .ALPHA.-TOCOPHEROL
     Route: 050
  15. GINKGO [Concomitant]
     Active Substance: GINKGO
     Route: 050
  16. BILBERRY [Concomitant]
     Active Substance: BILBERRY
     Route: 050
  17. MENAQUINONE 6 [Concomitant]
     Active Substance: MENAQUINONE 6
     Dosage: K2-45
     Route: 050

REACTIONS (15)
  - Product dose omission issue [Unknown]
  - Hypoaesthesia [Not Recovered/Not Resolved]
  - Mobility decreased [Not Recovered/Not Resolved]
  - Motor dysfunction [Not Recovered/Not Resolved]
  - Back pain [Not Recovered/Not Resolved]
  - Paraesthesia [Not Recovered/Not Resolved]
  - Multiple sclerosis [Not Recovered/Not Resolved]
  - Gait disturbance [Unknown]
  - Pain [Unknown]
  - Malaise [Unknown]
  - Dizziness [Unknown]
  - Food poisoning [Unknown]
  - Fall [Recovered/Resolved]
  - Pruritus [Not Recovered/Not Resolved]
  - Flushing [Recovered/Resolved]

NARRATIVE: CASE EVENT DATE: 20240101
